FAERS Safety Report 19896059 (Version 3)
Quarter: 2021Q4

REPORT INFORMATION
  Report Type: Spontaneous
  Country: US (occurrence: None)
  Receive Date: 20210929
  Receipt Date: 20211111
  Transmission Date: 20220303
  Serious: Yes (Other)
  Sender: FDA-Public Use
  Company Number: 2021A736018

PATIENT
  Age: 75 Year
  Sex: Male
  Weight: 107 kg

DRUGS (8)
  1. BYDUREON BCISE [Suspect]
     Active Substance: EXENATIDE
     Indication: Type 2 diabetes mellitus
     Route: 065
  2. BYDUREON BCISE [Suspect]
     Active Substance: EXENATIDE
     Indication: Type 2 diabetes mellitus
     Route: 065
  3. BYDUREON [Suspect]
     Active Substance: EXENATIDE
     Route: 065
  4. ROSUVASTATIN [Suspect]
     Active Substance: ROSUVASTATIN
     Indication: Blood cholesterol
     Dosage: DAILY
     Route: 048
  5. JARDIANCE [Concomitant]
     Active Substance: EMPAGLIFLOZIN
  6. XARELTO [Concomitant]
     Active Substance: RIVAROXABAN
     Indication: Haemodilution
     Dosage: DAILY
  7. AMLODIPINE [Concomitant]
     Active Substance: AMLODIPINE BESYLATE
     Indication: Blood pressure abnormal
     Dosage: DAILY
  8. LANTUS [Concomitant]
     Active Substance: INSULIN GLARGINE
     Dosage: BID

REACTIONS (3)
  - Heart rate irregular [Unknown]
  - Blood glucose abnormal [Unknown]
  - Device delivery system issue [Unknown]

NARRATIVE: CASE EVENT DATE: 20210101
